FAERS Safety Report 9103449 (Version 1)
Quarter: 2013Q1

REPORT INFORMATION
  Report Type: Report from Study
  Country: FR (occurrence: FR)
  Receive Date: 20130215
  Receipt Date: 20130215
  Transmission Date: 20140127
  Serious: Yes (Hospitalization, Other)
  Sender: FDA-Public Use
  Company Number: PHHY2011FR22557

PATIENT
  Sex: Male
  Weight: 76 kg

DRUGS (10)
  1. STI571 [Suspect]
     Indication: CHRONIC MYELOID LEUKAEMIA
     Dosage: 300 MG, DAILY
     Route: 048
     Dates: start: 20040929
  2. STI571 [Suspect]
     Dosage: 300 MG, DAILY
     Route: 048
  3. TAHOR [Concomitant]
     Dosage: 80 MG, DAILY
  4. ASPEGIC [Concomitant]
     Dosage: 250 MG, DAILY
  5. TEMERIT [Concomitant]
     Dosage: 2.5 MG, DAILY
  6. CORDARONE [Concomitant]
     Dosage: 200 MG, DAILY
  7. INEXIUM [Concomitant]
     Dosage: 40 MG, DAILY
  8. COUMADINE [Concomitant]
     Dosage: 5 MG, DAILY
  9. LASILIX [Concomitant]
     Dosage: 80 MG MORNING AND 40 MG MIDDAY
  10. CALCIPARINE [Concomitant]
     Dosage: 06 ML, TID

REACTIONS (4)
  - Fall [Unknown]
  - Femoral neck fracture [Not Recovered/Not Resolved]
  - Pleural effusion [Recovering/Resolving]
  - Obstructive airways disorder [Unknown]
